FAERS Safety Report 18284247 (Version 3)
Quarter: 2023Q4

REPORT INFORMATION
  Report Type: Report from Study
  Country: BR (occurrence: BR)
  Receive Date: 20200918
  Receipt Date: 20231101
  Transmission Date: 20240109
  Serious: Yes (Life-Threatening, Disabling, Other)
  Sender: FDA-Public Use
  Company Number: None

PATIENT
  Age: 49 Year
  Sex: Female

DRUGS (15)
  1. SANDOSTATIN LAR DEPOT [Suspect]
     Active Substance: OCTREOTIDE ACETATE
     Indication: Acromegaly
     Dosage: 30 MG (OTHER)
     Route: 065
     Dates: start: 2017
  2. SANDOSTATIN LAR DEPOT [Suspect]
     Active Substance: OCTREOTIDE ACETATE
     Indication: Brain neoplasm
     Dosage: UNK
     Route: 065
     Dates: start: 20191017
  3. SANDOSTATIN LAR DEPOT [Suspect]
     Active Substance: OCTREOTIDE ACETATE
     Dosage: 20 MG, Q4W
     Route: 065
     Dates: start: 20191112
  4. SANDOSTATIN LAR DEPOT [Suspect]
     Active Substance: OCTREOTIDE ACETATE
     Dosage: 20 MG
     Route: 065
     Dates: start: 201911
  5. SANDOSTATIN LAR DEPOT [Suspect]
     Active Substance: OCTREOTIDE ACETATE
     Dosage: 30 MG, (IN FEB 2020 OR MAR 2020)
     Route: 065
  6. FLUOXETINE HYDROCHLORIDE [Suspect]
     Active Substance: FLUOXETINE HYDROCHLORIDE
     Indication: Product used for unknown indication
     Dosage: 20 MG
     Route: 065
  7. NOVALGINA [Suspect]
     Active Substance: ACETAMINOPHEN\CAFFEINE
     Indication: Pain
     Dosage: 1 G
     Route: 065
  8. METAMIZOLE [Suspect]
     Active Substance: METAMIZOLE
     Indication: Pain
     Dosage: 1 G
     Route: 065
  9. PREDNISONE [Suspect]
     Active Substance: PREDNISONE
     Indication: Product used for unknown indication
     Dosage: 5 MG
     Route: 065
  10. BETAHISTINE [Suspect]
     Active Substance: BETAHISTINE
     Indication: Labyrinthitis
     Dosage: 24 MG
     Route: 065
  11. HYDROCHLOROTHIAZIDE [Suspect]
     Active Substance: HYDROCHLOROTHIAZIDE
     Indication: Product used for unknown indication
     Dosage: 25 MG
     Route: 065
  12. AMITRIPTYLINE [Suspect]
     Active Substance: AMITRIPTYLINE
     Indication: Product used for unknown indication
     Dosage: UNK
     Route: 065
  13. LOSARTAN [Suspect]
     Active Substance: LOSARTAN
     Indication: Hypertension
     Dosage: UNK
     Route: 065
  14. CAPTOPRIL [Suspect]
     Active Substance: CAPTOPRIL
     Indication: Product used for unknown indication
     Dosage: UNK
     Route: 065
  15. CABERGOLINE [Suspect]
     Active Substance: CABERGOLINE
     Indication: Product used for unknown indication
     Dosage: 5 MG
     Route: 065

REACTIONS (56)
  - Coma [Recovered/Resolved]
  - Respiratory arrest [Recovered/Resolved]
  - Cerebrovascular accident [Recovered/Resolved with Sequelae]
  - Extrasystoles [Recovered/Resolved]
  - Dysentery [Recovered/Resolved]
  - Headache [Not Recovered/Not Resolved]
  - Neoplasm malignant [Not Recovered/Not Resolved]
  - Cerebrovascular accident [Not Recovered/Not Resolved]
  - Syncope [Unknown]
  - Lipoma [Not Recovered/Not Resolved]
  - Concomitant disease aggravated [Not Recovered/Not Resolved]
  - Cerebral artery stenosis [Unknown]
  - Movement disorder [Recovered/Resolved]
  - Dysarthria [Recovering/Resolving]
  - Diarrhoea [Recovered/Resolved]
  - Diarrhoea [Recovered/Resolved]
  - Limb deformity [Unknown]
  - Foot deformity [Recovered/Resolved]
  - Epistaxis [Unknown]
  - Nasal oedema [Unknown]
  - Pain [Recovering/Resolving]
  - Crying [Unknown]
  - Body height abnormal [Unknown]
  - Insomnia [Unknown]
  - Tooth malformation [Recovering/Resolving]
  - Tooth disorder [Not Recovered/Not Resolved]
  - Dental caries [Recovering/Resolving]
  - Root canal infection [Not Recovered/Not Resolved]
  - Teeth brittle [Recovering/Resolving]
  - Tooth loss [Recovering/Resolving]
  - Menopausal disorder [Not Recovered/Not Resolved]
  - Discomfort [Unknown]
  - Speech disorder [Recovered/Resolved]
  - Anger [Unknown]
  - Stress [Unknown]
  - Irritability [Unknown]
  - Malaise [Unknown]
  - Foot deformity [Not Recovered/Not Resolved]
  - Deformity [Not Recovered/Not Resolved]
  - Head discomfort [Not Recovered/Not Resolved]
  - Paraesthesia [Not Recovered/Not Resolved]
  - Limb discomfort [Not Recovered/Not Resolved]
  - Blood pressure fluctuation [Not Recovered/Not Resolved]
  - Hypertension [Unknown]
  - Neck pain [Unknown]
  - Hypotension [Unknown]
  - Hand deformity [Unknown]
  - Nervousness [Unknown]
  - Memory impairment [Recovering/Resolving]
  - Visual impairment [Not Recovered/Not Resolved]
  - Fatigue [Unknown]
  - Condition aggravated [Unknown]
  - Metabolic disorder [Unknown]
  - Ear discomfort [Unknown]
  - Hypoacusis [Unknown]
  - Product dose omission issue [Unknown]

NARRATIVE: CASE EVENT DATE: 20101101
